FAERS Safety Report 6330222-4 (Version None)
Quarter: 2009Q3

REPORT INFORMATION
  Report Type: 
  Country: None (occurrence: None)
  Receive Date: 20090827
  Receipt Date: 20090724
  Transmission Date: 20100115
  Serious: No
  Sender: FDA-Public Use
  Company Number: A0800965A

PATIENT
  Age: 61 Year
  Sex: Female

DRUGS (7)
  1. LAMICTAL [Suspect]
     Indication: DRUG USE FOR UNKNOWN INDICATION
     Dates: start: 20080101
  2. LUNESTA [Suspect]
     Dosage: 3MG AT NIGHT
     Dates: start: 20080101
  3. LEVOXYL [Concomitant]
  4. ALLEGRA [Concomitant]
  5. FLONASE [Concomitant]
  6. CICLESONIDE [Concomitant]
  7. CLONAZEPAM [Concomitant]

REACTIONS (1)
  - ALOPECIA [None]
